FAERS Safety Report 17229615 (Version 3)
Quarter: 2020Q1

REPORT INFORMATION
  Report Type: Spontaneous
  Country: DE (occurrence: DE)
  Receive Date: 20200103
  Receipt Date: 20200214
  Transmission Date: 20200409
  Serious: Yes (Life-Threatening, Hospitalization, Other)
  Sender: FDA-Public Use
  Company Number: DE-MACLEODS PHARMACEUTICALS US LTD-MAC2019024675

PATIENT

DRUGS (1)
  1. TRAMADOL. [Suspect]
     Active Substance: TRAMADOL
     Indication: PRODUCT USED FOR UNKNOWN INDICATION
     Dosage: 100 MILLIGRAM, SUPPOSITORY, TRAMAL, CRISPIN (TRAMADOL)
     Route: 054

REACTIONS (4)
  - Depressed level of consciousness [Recovered/Resolved]
  - Poisoning [Recovered/Resolved]
  - Seizure [Recovered/Resolved]
  - Wrong product administered [Unknown]
